FAERS Safety Report 21940572 (Version 1)
Quarter: 2023Q1

REPORT INFORMATION
  Report Type: Report from Study
  Country: US (occurrence: US)
  Receive Date: 20230201
  Receipt Date: 20230201
  Transmission Date: 20230418
  Serious: No
  Sender: FDA-Public Use
  Company Number: US-EXELIXIS-CABO-22051275

PATIENT
  Sex: Male
  Weight: 74.83 kg

DRUGS (3)
  1. CABOMETYX [Suspect]
     Active Substance: CABOZANTINIB S-MALATE
     Indication: Osteosarcoma
     Dosage: 20 MG, QD
     Route: 048
     Dates: start: 20220411
  2. CABOMETYX [Suspect]
     Active Substance: CABOZANTINIB S-MALATE
     Dosage: (TWO 20 MG TABLETS MONDAY-SATURDAY AND 1 TABLET ON SUNDAY)(TAKE 3 TABLETS ON MON, WED, FRIDAY AND 2
     Route: 048
     Dates: start: 20220418
  3. FULPHILA [Concomitant]
     Active Substance: PEGFILGRASTIM-JMDB

REACTIONS (2)
  - Neoplasm [Unknown]
  - Off label use [Unknown]
